FAERS Safety Report 5763732-9 (Version None)
Quarter: 2008Q2

REPORT INFORMATION
  Report Type: 
  Country: None (occurrence: None)
  Receive Date: 20080610
  Receipt Date: 20080530
  Transmission Date: 20081010
  Serious: Yes (Hospitalization)
  Sender: FDA-Public Use
  Company Number: FR-BRISTOL-MYERS SQUIBB COMPANY-14220115

PATIENT
  Age: 47 Year
  Sex: Male

DRUGS (7)
  1. ERBITUX [Suspect]
     Indication: COLORECTAL CANCER
     Route: 042
     Dates: start: 20080213, end: 20080213
  2. OXALIPLATIN [Suspect]
     Indication: COLORECTAL CANCER
     Route: 042
     Dates: start: 20080213, end: 20080213
  3. FLUOROURACIL [Suspect]
     Indication: COLORECTAL CANCER
     Route: 042
     Dates: start: 20080213, end: 20080213
  4. FOLINATE [Concomitant]
     Indication: COLORECTAL CANCER
     Dates: start: 20080213, end: 20080213
  5. POLARAMINE [Concomitant]
     Dates: start: 20080213, end: 20080213
  6. RANITIDINE [Concomitant]
     Dates: start: 20080213, end: 20080213
  7. METHYLPREDNISOLONE [Concomitant]
     Dates: start: 20080213, end: 20080213

REACTIONS (4)
  - HYPERTHERMIA [None]
  - INTRAVASCULAR HAEMOLYSIS [None]
  - RENAL FAILURE ACUTE [None]
  - TACHYCARDIA [None]
